FAERS Safety Report 5520298-6 (Version None)
Quarter: 2007Q4

REPORT INFORMATION
  Report Type: 
  Country: None (occurrence: None)
  Receive Date: 20071115
  Receipt Date: 20071115
  Transmission Date: 20080405
  Serious: No
  Sender: FDA-Public Use
  Company Number: None

PATIENT
  Age: 66 Year
  Sex: Male

DRUGS (2)
  1. PREDNISOLONE SODIUM PHOSPHATE [Suspect]
     Dosage: ONE ST QID TOPICAL
     Route: 061
     Dates: start: 20070907, end: 20070911
  2. 1% PRED ACETATE, FALCON [Suspect]
     Dosage: ONE ST QID  EYE
     Route: 047
     Dates: start: 20070911, end: 20070918

REACTIONS (2)
  - KERATITIS [None]
  - THERAPEUTIC RESPONSE UNEXPECTED WITH DRUG SUBSTITUTION [None]
